FAERS Safety Report 9180616 (Version 2)
Quarter: 2014Q1

REPORT INFORMATION
  Report Type: Spontaneous
  Country: FR (occurrence: None)
  Receive Date: 20130320
  Receipt Date: 20140122
  Transmission Date: 20141002
  Serious: Yes (Hospitalization)
  Sender: FDA-Public Use
  Company Number: 1634671

PATIENT
  Age: 43 Year
  Sex: Female

DRUGS (1)
  1. PAMIDRONIC ACID [Suspect]
     Indication: HYPERCALCAEMIA
     Route: 042
     Dates: start: 20130207, end: 20130207

REACTIONS (2)
  - Pancytopenia [None]
  - Haematotoxicity [None]
